FAERS Safety Report 12980233 (Version 4)
Quarter: 2021Q2

REPORT INFORMATION
  Report Type: Report from Study
  Country: DE (occurrence: DE)
  Receive Date: 20161128
  Receipt Date: 20210517
  Transmission Date: 20210716
  Serious: Yes (Hospitalization)
  Sender: FDA-Public Use
  Company Number: DE-BRISTOL-MYERS SQUIBB COMPANY-BMS-2016-099318

PATIENT
  Age: 78 Year
  Sex: Female

DRUGS (5)
  1. HYDROXYCHLOROQUINE SULFATE. [Suspect]
     Active Substance: HYDROXYCHLOROQUINE SULFATE
     Indication: RHEUMATOID ARTHRITIS
     Dosage: 200 MG, QD
     Route: 065
     Dates: end: 201609
  2. ABATACEPT [Suspect]
     Active Substance: ABATACEPT
     Indication: RHEUMATOID ARTHRITIS
     Dosage: 125 MG, QWK
     Route: 058
  3. CHLOROQUINE. [Suspect]
     Active Substance: CHLOROQUINE
     Indication: RHEUMATOID ARTHRITIS
     Dosage: 200 MG, QD
     Route: 065
     Dates: end: 201609
  4. TOCILIZUMAB. [Suspect]
     Active Substance: TOCILIZUMAB
     Indication: RHEUMATOID ARTHRITIS
     Route: 065
  5. METHOTREXATE SODIUM. [Suspect]
     Active Substance: METHOTREXATE SODIUM
     Indication: RHEUMATOID ARTHRITIS
     Dosage: 15 MG, QWK
     Route: 065

REACTIONS (3)
  - Nasopharyngitis [Unknown]
  - Nasal herpes [Unknown]
  - Bursitis [Not Recovered/Not Resolved]

NARRATIVE: CASE EVENT DATE: 20160704
